FAERS Safety Report 13428236 (Version 8)
Quarter: 2017Q4

REPORT INFORMATION
  Report Type: Spontaneous
  Country: US (occurrence: US)
  Receive Date: 20170411
  Receipt Date: 20171122
  Transmission Date: 20180320
  Serious: Yes (Congenital Anomaly, Other)
  Sender: FDA-Public Use
  Company Number: PHEH2017US010494

PATIENT
  Sex: Female

DRUGS (3)
  1. ZOFRAN [Suspect]
     Active Substance: ONDANSETRON HYDROCHLORIDE
     Indication: FOETAL EXPOSURE DURING PREGNANCY
     Route: 064
  2. ONDANSETRONE RANBAXY [Suspect]
     Active Substance: ONDANSETRON HYDROCHLORIDE
     Indication: FOETAL EXPOSURE DURING PREGNANCY
     Dosage: MOTHER DOSE: 04 MG, Q6H
     Route: 064
  3. ONDANSETRON AUROBINDO [Suspect]
     Active Substance: ONDANSETRON HYDROCHLORIDE
     Indication: FOETAL EXPOSURE DURING PREGNANCY
     Dosage: MOTHER DOSE: 04 MG, Q4H
     Route: 064

REACTIONS (31)
  - Cough [Unknown]
  - Sleep apnoea syndrome [Unknown]
  - Sinus arrhythmia [Unknown]
  - Shone complex [Unknown]
  - Congenital aortic valve incompetence [Unknown]
  - Premature baby [Unknown]
  - Femoral pulse decreased [Unknown]
  - Tonsillar hypertrophy [Unknown]
  - Upper respiratory tract infection [Unknown]
  - Foetal exposure during pregnancy [Unknown]
  - Dyspnoea [Unknown]
  - Ear pain [Unknown]
  - Bicuspid aortic valve [Unknown]
  - Congenital mitral valve stenosis [Unknown]
  - Atrial septal defect [Unknown]
  - Pneumothorax [Unknown]
  - Pleural effusion [Unknown]
  - Cardiac murmur [Unknown]
  - Language disorder [Unknown]
  - Acute sinusitis [Unknown]
  - Hypertrophic cardiomyopathy [Unknown]
  - Injury [Unknown]
  - Decreased appetite [Unknown]
  - Pyrexia [Unknown]
  - Heart disease congenital [Unknown]
  - Gastrooesophageal reflux disease [Unknown]
  - Coarctation of the aorta [Unknown]
  - Emphysema [Unknown]
  - Left ventricular hypertrophy [Unknown]
  - Rhinorrhoea [Unknown]
  - Otitis media acute [Unknown]
